FAERS Safety Report 20768720 (Version 1)
Quarter: 2022Q2

REPORT INFORMATION
  Report Type: Spontaneous
  Country: US (occurrence: None)
  Receive Date: 20220428
  Receipt Date: 20220428
  Transmission Date: 20220720
  Serious: Yes (Death)
  Sender: FDA-Public Use
  Company Number: None

PATIENT
  Sex: Male
  Weight: 108.8 kg

DRUGS (5)
  1. SPRYCEL [Suspect]
     Active Substance: DASATINIB
     Indication: Acute lymphocytic leukaemia
     Dosage: FREQUENCY : DAILY;?
     Route: 048
  2. CALCIUM [Concomitant]
  3. MIDODRINE HCI [Concomitant]
  4. SENSIPAR [Concomitant]
  5. PRORENAL + D [Concomitant]

REACTIONS (1)
  - Death [None]
